FAERS Safety Report 21460247 (Version 1)
Quarter: 2022Q4

REPORT INFORMATION
  Report Type: Spontaneous
  Country: US (occurrence: US)
  Receive Date: 20221014
  Receipt Date: 20221014
  Transmission Date: 20230112
  Serious: Yes (Other)
  Sender: FDA-Public Use
  Company Number: US-Indivior Limited-INDV-131638-2021

PATIENT
  Age: 21 Year
  Sex: Male

DRUGS (18)
  1. SUBLOCADE [Suspect]
     Active Substance: BUPRENORPHINE
     Indication: Drug dependence
     Dosage: 300 MILLIGRAM, QMO (TWO INJECTIONS)
     Route: 058
     Dates: start: 20210910
  2. BUPRENORPHINE\NALOXONE [Suspect]
     Active Substance: BUPRENORPHINE\NALOXONE
     Indication: Drug dependence
     Dosage: 2 MILLIGRAM, BID
     Route: 060
     Dates: start: 2021
  3. ACETAMINOPHEN [Concomitant]
     Active Substance: ACETAMINOPHEN
     Indication: Pain
     Dosage: 650 MILLIGRAM, Q6H
     Route: 048
  4. ACETAMINOPHEN [Concomitant]
     Active Substance: ACETAMINOPHEN
     Indication: Local anaesthesia
  5. ACETAMINOPHEN [Concomitant]
     Active Substance: ACETAMINOPHEN
     Indication: Headache
  6. DOCUSATE [Concomitant]
     Active Substance: DOCUSATE
     Indication: Constipation
     Dosage: 200 MILLIGRAM, BID
     Route: 048
  7. HYDRALAZINE [Concomitant]
     Active Substance: HYDRALAZINE HYDROCHLORIDE
     Indication: Anxiety
     Dosage: 50 MILLIGRAM, BID
     Route: 048
  8. NICOTINE [Concomitant]
     Active Substance: NICOTINE
     Indication: Nicotine dependence
     Dosage: 21 MILLIGRAM/24 HR PATCH
     Route: 062
  9. NICOTINE POLACRILEX [Concomitant]
     Active Substance: NICOTINE
     Indication: Nicotine dependence
     Dosage: 2 MILLIGRAM, Q2H (CHEWABLE)
     Route: 048
  10. MIRALAX [Concomitant]
     Active Substance: POLYETHYLENE GLYCOL 3350
     Indication: Constipation
     Dosage: 1 PACKET DAILY
     Route: 048
  11. PLANTAGO AFRA SEED [Concomitant]
     Active Substance: PLANTAGO AFRA SEED
     Indication: Constipation
     Dosage: SUGAR FREE PACK (1 PACKET DAILY)
     Route: 048
  12. TRAZODONE [Concomitant]
     Active Substance: TRAZODONE HYDROCHLORIDE
     Indication: Product used for unknown indication
     Dosage: 100 MILLIGRAM (BED TIME)
     Route: 048
  13. DEXMEDETOMIDINE [Concomitant]
     Active Substance: DEXMEDETOMIDINE
     Indication: Local anaesthesia
     Dosage: UNK
     Route: 065
  14. MIDAZOLAM [Concomitant]
     Active Substance: MIDAZOLAM
     Indication: Local anaesthesia
     Dosage: UNK
     Route: 065
  15. KETOROLAC [Concomitant]
     Active Substance: KETOROLAC TROMETHAMINE
     Indication: Local anaesthesia
     Dosage: UNK
     Route: 065
  16. COVID-19 VACCINE [Concomitant]
     Indication: Immunisation
     Dosage: UNK (1 ST DOSE)
     Route: 065
  17. COVID-19 VACCINE [Concomitant]
     Dosage: UNK (2 DOSE)
     Route: 065
     Dates: start: 20210917, end: 20210917
  18. INFLUENZA VIRUS VACCINE [Concomitant]
     Active Substance: INFLUENZA VIRUS VACCINE
     Indication: Immunisation
     Dosage: UNK
     Route: 065
     Dates: start: 20211028, end: 20211028

REACTIONS (8)
  - Injection site necrosis [Recovered/Resolved]
  - Drug delivery system removal [Recovered/Resolved]
  - Wrong technique in product usage process [Recovered/Resolved]
  - Injection site discolouration [Recovered/Resolved]
  - Drug withdrawal syndrome [Unknown]
  - Injection site pruritus [Recovered/Resolved]
  - Inappropriate schedule of product administration [Not Recovered/Not Resolved]
  - Drug dependence [Recovered/Resolved]

NARRATIVE: CASE EVENT DATE: 20210101
